FAERS Safety Report 14402355 (Version 1)
Quarter: 2018Q1

REPORT INFORMATION
  Report Type: Report from Study
  Country: NL (occurrence: NL)
  Receive Date: 20180117
  Receipt Date: 20180117
  Transmission Date: 20180509
  Serious: Yes (Other)
  Sender: FDA-Public Use
  Company Number: NL-JNJFOC-20180110930

PATIENT

DRUGS (1)
  1. USTEKINUMAB [Suspect]
     Active Substance: USTEKINUMAB
     Indication: PSORIASIS
     Route: 058

REACTIONS (8)
  - Adverse drug reaction [Unknown]
  - Candida infection [Unknown]
  - Neoplasm malignant [Unknown]
  - Headache [Unknown]
  - Nasopharyngitis [Unknown]
  - Opportunistic infection [Unknown]
  - Cardiovascular disorder [Unknown]
  - Upper respiratory tract infection [Unknown]
